FAERS Safety Report 19524996 (Version 1)
Quarter: 2021Q3

REPORT INFORMATION
  Report Type: Spontaneous
  Country: US (occurrence: US)
  Receive Date: 20210713
  Receipt Date: 20210713
  Transmission Date: 20211014
  Serious: Yes (Other)
  Sender: FDA-Public Use
  Company Number: None

PATIENT
  Age: 44 Year
  Sex: Female

DRUGS (1)
  1. ETONOGESTREL/ETHINYL ESTRADIOL [Suspect]
     Active Substance: ETHINYL ESTRADIOL\ETONOGESTREL
     Dosage: ?          OTHER FREQUENCY:MONTHLY;?
     Route: 067

REACTIONS (2)
  - Heavy menstrual bleeding [None]
  - Oligomenorrhoea [None]

NARRATIVE: CASE EVENT DATE: 20210706
